FAERS Safety Report 8947256 (Version 3)
Quarter: 2013Q1

REPORT INFORMATION
  Report Type: Spontaneous
  Country: JP (occurrence: JP)
  Receive Date: 20121205
  Receipt Date: 20130212
  Transmission Date: 20140127
  Serious: Yes (Hospitalization)
  Sender: FDA-Public Use
  Company Number: JP-009507513-1211JPN012800

PATIENT
  Age: 65 Year
  Sex: Male
  Weight: 67 kg

DRUGS (12)
  1. PEGINTRON [Suspect]
     Indication: CHRONIC HEPATITIS C
     Dosage: 1.5 MICROGRAM PER KILOGRAM, QW
     Route: 058
     Dates: start: 20121107, end: 20121112
  2. REBETOL [Suspect]
     Indication: CHRONIC HEPATITIS C
     Dosage: 600 MG, QD
     Route: 048
     Dates: start: 20121107, end: 20121112
  3. TELAVIC [Suspect]
     Indication: CHRONIC HEPATITIS C
     Dosage: 2250 MG, QD
     Route: 048
     Dates: start: 20121107, end: 20121112
  4. URSO [Concomitant]
     Indication: CHRONIC HEPATITIS C
     Dosage: 900 MG, QD
     Route: 048
     Dates: start: 20030409, end: 20121107
  5. GLYCYRON [Concomitant]
     Indication: CHRONIC HEPATITIS C
     Dosage: 6 DF, QD
     Route: 048
     Dates: start: 20030409, end: 20121107
  6. BEZATOL SR [Concomitant]
     Dosage: 400 MG, QD
     Route: 048
     Dates: start: 20090415
  7. CARDENALIN [Concomitant]
     Dosage: 4 MG, QD
     Route: 048
     Dates: start: 20090819
  8. [THERAPY UNSPECIFIED] [Concomitant]
     Dosage: 1 DF, QD
     Route: 048
     Dates: start: 20101215
  9. RASILEZ [Concomitant]
     Dosage: 150 MG, QD
     Route: 048
     Dates: start: 20101215, end: 20121122
  10. EQUA [Concomitant]
     Dosage: 100 MG, QD
     Route: 048
     Dates: start: 20121105, end: 20121116
  11. AMARYL [Concomitant]
     Dosage: 1 MG, QD
     Route: 048
     Dates: start: 20121105, end: 20121112
  12. ALOSITOL [Concomitant]
     Dosage: 100 MG, QD
     Route: 048
     Dates: start: 2012

REACTIONS (1)
  - Renal impairment [Recovering/Resolving]
